FAERS Safety Report 6665189-2 (Version None)
Quarter: 2010Q2

REPORT INFORMATION
  Report Type: 
  Country: None (occurrence: None)
  Receive Date: 20100402
  Receipt Date: 20100330
  Transmission Date: 20101027
  Serious: Yes (Death, Other)
  Sender: FDA-Public Use
  Company Number: PHHY2010CA15309

PATIENT
  Sex: Male

DRUGS (2)
  1. DIOVAN [Suspect]
     Indication: HYPERTENSION
     Dosage: 160 MG, UNK
     Route: 048
     Dates: start: 20081216
  2. AMIODARONE HCL [Concomitant]
     Dosage: 200 MG, UNK

REACTIONS (6)
  - ASCITES [None]
  - DEATH [None]
  - HEPATIC CIRRHOSIS [None]
  - RENAL FAILURE ACUTE [None]
  - UROSEPSIS [None]
  - WAIST CIRCUMFERENCE INCREASED [None]
